FAERS Safety Report 4568217-3 (Version None)
Quarter: 2005Q1

REPORT INFORMATION
  Report Type: 
  Country: None (occurrence: None)
  Receive Date: 20050202
  Receipt Date: 20050125
  Transmission Date: 20050727
  Serious: Yes (Hospitalization)
  Sender: FDA-Public Use
  Company Number: US-JNJFOC-20050105762

PATIENT
  Sex: Male
  Weight: 92.08 kg

DRUGS (9)
  1. VIADUR [Suspect]
     Indication: PROSTATE CANCER
     Route: 058
  2. ASPIRIN [Concomitant]
     Route: 049
  3. LIPITOR [Concomitant]
     Route: 049
  4. CASODEX [Concomitant]
     Route: 049
  5. ACTOSE [Concomitant]
  6. PLAVIX [Concomitant]
  7. DIOVAN [Concomitant]
  8. GLUCOPHAGE [Concomitant]
  9. TOPROL-XL [Concomitant]

REACTIONS (5)
  - BLOOD GLUCOSE INCREASED [None]
  - BLOOD PRESSURE FLUCTUATION [None]
  - BLOOD PRESSURE INCREASED [None]
  - IMPLANT SITE ERYTHEMA [None]
  - IMPLANT SITE REACTION [None]
